FAERS Safety Report 11865496 (Version 4)
Quarter: 2016Q1

REPORT INFORMATION
  Report Type: Report from Study
  Country: BR (occurrence: BR)
  Receive Date: 20151223
  Receipt Date: 20160218
  Transmission Date: 20160526
  Serious: Yes (Life-Threatening, Hospitalization, Other)
  Sender: FDA-Public Use
  Company Number: PHHY2014BR136145

PATIENT
  Age: 57 Year
  Sex: Female
  Weight: 70 kg

DRUGS (5)
  1. ACLASTA [Suspect]
     Active Substance: ZOLEDRONIC ACID
     Indication: OSTEOPENIA
     Dosage: 1 DF (5 MG), Q12MO (STARTED 3 YEARS AGO)
     Route: 042
     Dates: start: 2013
  2. CICLOBENZAPRINA [Concomitant]
     Indication: MUSCLE RELAXANT THERAPY
     Dosage: 1 DF, QD
     Route: 065
     Dates: start: 2010
  3. ACLASTA [Suspect]
     Active Substance: ZOLEDRONIC ACID
     Indication: OSTEOPOROSIS
     Dosage: 1 DF (5 MG), Q12MO
     Route: 042
     Dates: start: 20150917, end: 20150917
  4. ACLASTA [Suspect]
     Active Substance: ZOLEDRONIC ACID
     Indication: HYPOTHYROIDISM
     Dosage: 1 DF (5 MG), Q12MO
     Route: 042
     Dates: start: 2014
  5. DEPURA [Concomitant]
     Active Substance: CHOLECALCIFEROL
     Indication: HYPOVITAMINOSIS
     Dosage: 4 DRP, UNK
     Route: 065
     Dates: start: 2010

REACTIONS (23)
  - Calcinosis [Unknown]
  - Influenza like illness [Recovered/Resolved]
  - Pain [Recovered/Resolved]
  - Nervous system disorder [Recovering/Resolving]
  - Hyperhidrosis [Recovering/Resolving]
  - Pain [Recovering/Resolving]
  - Feeling abnormal [Recovering/Resolving]
  - Depression [Recovering/Resolving]
  - Weight decreased [Recovering/Resolving]
  - Blood calcium increased [Unknown]
  - Feeling hot [Recovering/Resolving]
  - Blood calcium decreased [Recovering/Resolving]
  - General physical health deterioration [Unknown]
  - Hypoaesthesia [Recovering/Resolving]
  - Pyrexia [Recovering/Resolving]
  - Nephrolithiasis [Unknown]
  - Malaise [Unknown]
  - Hypothyroidism [Recovering/Resolving]
  - Abasia [Recovering/Resolving]
  - Mood altered [Recovering/Resolving]
  - Apparent death [Recovering/Resolving]
  - Asthenia [Recovering/Resolving]
  - Fatigue [Recovering/Resolving]

NARRATIVE: CASE EVENT DATE: 2013
